FAERS Safety Report 5059106-9 (Version None)
Quarter: 2006Q3

REPORT INFORMATION
  Report Type: 
  Country: None (occurrence: None)
  Receive Date: 20060718
  Receipt Date: 20060705
  Transmission Date: 20061208
  Serious: Yes (Hospitalization, Other)
  Sender: FDA-Public Use
  Company Number: 2006084865

PATIENT
  Sex: Female

DRUGS (9)
  1. NEURONTIN [Suspect]
     Indication: TRIGEMINAL NEURALGIA
     Dosage: 2400 MG (600 MG 4 IN 1 D)
     Dates: end: 20060621
  2. DILANTIN [Suspect]
     Indication: CONVULSION
     Dosage: (1 IN 1 D)
     Dates: start: 20060623
  3. GABAPENTIN [Suspect]
     Indication: TRIGEMINAL NEURALGIA
     Dosage: 2400 MG (600 MG 4 IN 1 D)
  4. ALL OTHER THERAPEUTIC PRODUCTS [Suspect]
     Indication: DRUG USE FOR UNKNOWN INDICATION
  5. PROZAC [Concomitant]
  6. SYNTHROID [Concomitant]
  7. LASIX [Concomitant]
  8. ALLOPURINOL [Concomitant]
  9. NITRO PATCH                  (GLYCERYL TRINITRATE) [Concomitant]

REACTIONS (7)
  - BLOOD HOMOCYSTEINE DECREASED [None]
  - CONVULSION [None]
  - DYSPEPSIA [None]
  - MALAISE [None]
  - VITAMIN D DEFICIENCY [None]
  - WHITE BLOOD CELL COUNT INCREASED [None]
  - WRONG TECHNIQUE IN DRUG USAGE PROCESS [None]
